FAERS Safety Report 9343734 (Version 3)
Quarter: 2014Q1

REPORT INFORMATION
  Report Type: Report from Study
  Country: DE (occurrence: DE)
  Receive Date: 20130612
  Receipt Date: 20140127
  Transmission Date: 20141002
  Serious: Yes (Death, Hospitalization)
  Sender: FDA-Public Use
  Company Number: DE-JNJFOC-20130603621

PATIENT
  Age: 67 Year
  Sex: Male
  Weight: 74 kg

DRUGS (13)
  1. RIVAROXABAN [Suspect]
     Indication: PRODUCT USED FOR UNKNOWN INDICATION
     Route: 048
     Dates: start: 20130506
  2. RIVAROXABAN [Suspect]
     Indication: PRODUCT USED FOR UNKNOWN INDICATION
     Route: 048
     Dates: start: 20130415, end: 20130505
  3. RISPERDAL [Concomitant]
     Route: 065
     Dates: start: 201212
  4. DEXAMETHASON [Concomitant]
     Route: 065
     Dates: start: 20120830
  5. MELPERON [Concomitant]
     Route: 065
     Dates: start: 201212
  6. METOPROLOL [Concomitant]
     Route: 065
     Dates: start: 201212
  7. HUMAN INSULIN [Concomitant]
     Route: 065
     Dates: start: 201208
  8. PHENHYDAN (PHENYTOIN) [Concomitant]
     Route: 065
     Dates: start: 201210
  9. NEXIUM [Concomitant]
     Route: 065
     Dates: start: 201212
  10. PALLADON [Concomitant]
     Route: 065
     Dates: start: 201212
  11. GABAPENTIN [Concomitant]
     Route: 065
     Dates: start: 201212
  12. LANTUS [Concomitant]
     Route: 065
     Dates: start: 201208
  13. FOLSAN [Concomitant]
     Route: 065
     Dates: start: 201210

REACTIONS (2)
  - Asthenia [Recovered/Resolved]
  - Non-Hodgkin^s lymphoma [Fatal]
